FAERS Safety Report 5987857-8 (Version None)
Quarter: 2008Q4

REPORT INFORMATION
  Report Type: 
  Country: None (occurrence: None)
  Receive Date: 20081209
  Receipt Date: 20081124
  Transmission Date: 20090506
  Serious: Yes (Death)
  Sender: FDA-Public Use
  Company Number: IN-GENENTECH-272380

PATIENT
  Sex: Male

DRUGS (9)
  1. BEVACIZUMAB [Suspect]
     Indication: RENAL CELL CARCINOMA
     Dosage: 450 MG, Q2W
     Route: 042
     Dates: start: 20080930
  2. INTERFERON ALFA 2A [Suspect]
     Indication: RENAL CELL CARCINOMA
     Dosage: 9 IU, 3/WEEK
     Route: 058
     Dates: start: 20080930
  3. CEFIXIME CHEWABLE [Concomitant]
     Indication: DRUG USE FOR UNKNOWN INDICATION
     Dosage: UNK
     Dates: start: 20081031, end: 20081101
  4. CEFOTAXIM [Concomitant]
     Indication: DRUG USE FOR UNKNOWN INDICATION
     Dosage: UNK
     Dates: start: 20081028, end: 20081031
  5. FLUCONAZOLE [Concomitant]
     Indication: DRUG USE FOR UNKNOWN INDICATION
     Dosage: UNK
     Dates: start: 20081029, end: 20081102
  6. PANTOPRAZOLE SODIUM [Concomitant]
     Indication: DRUG USE FOR UNKNOWN INDICATION
     Dosage: UNK
     Dates: start: 20081031, end: 20081106
  7. CREMAFFIN [Concomitant]
     Indication: DRUG USE FOR UNKNOWN INDICATION
     Dosage: UNK
     Dates: start: 20081031
  8. TRAMADOL HCL [Concomitant]
     Indication: PAIN
     Dosage: UNK
     Dates: start: 20081030
  9. ACETAMINOPHEN [Concomitant]
     Indication: PAIN
     Dosage: UNK
     Dates: start: 20081030

REACTIONS (3)
  - ANAEMIA [None]
  - DEATH [None]
  - THROMBOCYTOPENIA [None]
